FAERS Safety Report 22314698 (Version 2)
Quarter: 2023Q2

REPORT INFORMATION
  Report Type: Spontaneous
  Country: US (occurrence: US)
  Receive Date: 20230512
  Receipt Date: 20230614
  Transmission Date: 20230722
  Serious: No
  Sender: FDA-Public Use
  Company Number: US-PFIZER INC-PV202300084853

PATIENT
  Age: 64 Year
  Sex: Male

DRUGS (2)
  1. NIVESTYM [Suspect]
     Active Substance: FILGRASTIM-AAFI
     Indication: White blood cell count decreased
     Dosage: UNK
  2. NIVESTYM [Suspect]
     Active Substance: FILGRASTIM-AAFI
     Indication: BK virus infection

REACTIONS (1)
  - Off label use [Unknown]
